FAERS Safety Report 9204325 (Version 1)
Quarter: 2013Q2

REPORT INFORMATION
  Report Type: Spontaneous
  Country: DE (occurrence: DE)
  Receive Date: 20130402
  Receipt Date: 20130402
  Transmission Date: 20140414
  Serious: Yes (Other)
  Sender: FDA-Public Use
  Company Number: DE-BAYER-2013-038027

PATIENT
  Sex: Female
  Weight: 62 kg

DRUGS (1)
  1. GADOVIST [Suspect]
     Dosage: 6 ML, ONCE

REACTIONS (3)
  - Oropharyngeal pain [Recovered/Resolved]
  - Erythema [Recovered/Resolved]
  - Nausea [Recovered/Resolved]
